FAERS Safety Report 10589558 (Version 1)
Quarter: 2014Q4

REPORT INFORMATION
  Report Type: Spontaneous
  Country: US (occurrence: None)
  Receive Date: 20141114
  Receipt Date: 20141114
  Transmission Date: 20150529
  Serious: Yes (Hospitalization, Other)
  Sender: FDA-Public Use
  Company Number: US-ZYDUS-005491

PATIENT
  Age: 62 Year
  Sex: Male

DRUGS (2)
  1. ESCITALOPRAM [Suspect]
     Active Substance: ESCITALOPRAM OXALATE
  2. METHYLTHIONINIUM CHLORIDE (METHYLTHIONINIUM CHLORIDE) [Suspect]
     Active Substance: METHYLENE BLUE
     Indication: VASOPLEGIA SYNDROME

REACTIONS (7)
  - Cardiac arrest [None]
  - Systemic inflammatory response syndrome [None]
  - Encephalopathy [None]
  - Hypotension [None]
  - Pulseless electrical activity [None]
  - Serotonin syndrome [None]
  - Drug interaction [None]
